FAERS Safety Report 10251893 (Version 1)
Quarter: 2014Q2

REPORT INFORMATION
  Report Type: Spontaneous
  Country: CN (occurrence: CN)
  Receive Date: 20140623
  Receipt Date: 20140623
  Transmission Date: 20141212
  Serious: Yes (Other)
  Sender: FDA-Public Use
  Company Number: CN-ROCHE-1421294

PATIENT
  Age: 56 Year
  Sex: Male
  Weight: 50 kg

DRUGS (2)
  1. BEVACIZUMAB [Suspect]
     Indication: GASTRIC CANCER
     Route: 041
     Dates: start: 20130828, end: 20130828
  2. RALTITREXED [Suspect]
     Indication: GASTRIC CANCER
     Route: 041
     Dates: start: 20130829, end: 20130829

REACTIONS (5)
  - Gastrointestinal haemorrhage [Recovering/Resolving]
  - Bone marrow failure [Not Recovered/Not Resolved]
  - Nausea [Not Recovered/Not Resolved]
  - Vomiting [Not Recovered/Not Resolved]
  - Lung infection [Unknown]
